FAERS Safety Report 21463789 (Version 7)
Quarter: 2024Q3

REPORT INFORMATION
  Report Type: Report from Study
  Country: CA (occurrence: CA)
  Receive Date: 20221017
  Receipt Date: 20240911
  Transmission Date: 20241017
  Serious: Yes (Other)
  Sender: ROCHE
  Company Number: CA-ROCHE-3198142

PATIENT
  Age: 63 Year
  Sex: Male

DRUGS (2)
  1. OCREVUS [Suspect]
     Active Substance: OCRELIZUMAB
     Indication: Relapsing-remitting multiple sclerosis
     Dosage: MORE DOSAGE INFORMATION IS 300 MG AT DAY 0 AND 14, THEN 600 MG EVERY 6 MONTH?CONCENTRATE FOR INTRAVE
     Route: 042
     Dates: start: 20211201
  2. AMOXICILLIN [Concomitant]
     Active Substance: AMOXICILLIN

REACTIONS (6)
  - Pneumonia viral [Recovering/Resolving]
  - Lower respiratory tract infection [Unknown]
  - Diverticulitis [Not Recovered/Not Resolved]
  - Hypoaesthesia [Unknown]
  - Asthenia [Unknown]
  - Gastrointestinal disorder [Unknown]

NARRATIVE: CASE EVENT DATE: 20221006
